FAERS Safety Report 25927030 (Version 1)
Quarter: 2025Q4

REPORT INFORMATION
  Report Type: Spontaneous
  Country: GB (occurrence: GB)
  Receive Date: 20251015
  Receipt Date: 20251015
  Transmission Date: 20260117
  Serious: Yes (Other)
  Sender: NOVO NORDISK
  Company Number: GB-MHRA-TPP21293143C9649455YC1759331365911

PATIENT
  Age: 51 Year
  Sex: Male
  Weight: 123 kg

DRUGS (3)
  1. RYBELSUS [Suspect]
     Active Substance: SEMAGLUTIDE
     Indication: Product used for unknown indication
     Dosage: 14 MG, QD
     Dates: start: 20250729
  2. METFORMIN [Concomitant]
     Active Substance: METFORMIN HYDROCHLORIDE
     Indication: Ill-defined disorder
     Dosage: 1 DF EVERY 12HOURS,TAKE ONE TABLET TWICE A DAY
     Dates: start: 20241224
  3. SERTRALINE [Concomitant]
     Active Substance: SERTRALINE HYDROCHLORIDE
     Indication: Ill-defined disorder
     Dosage: 1 DF QD,TAKE ONE TABLET ONCE A DAY
     Dates: start: 20241224

REACTIONS (1)
  - Visual acuity reduced transiently [Recovered/Resolved]
